FAERS Safety Report 9076843 (Version 2)
Quarter: 2013Q1

REPORT INFORMATION
  Report Type: Spontaneous
  Country: BR (occurrence: BR)
  Receive Date: 20130130
  Receipt Date: 20130315
  Transmission Date: 20140127
  Serious: Yes (Hospitalization, Other)
  Sender: FDA-Public Use
  Company Number: BR-MERCK-1301BRA012706

PATIENT
  Sex: Male

DRUGS (4)
  1. PEGINTRON [Suspect]
     Indication: HEPATITIS C
     Dosage: UNK, QW
     Route: 058
     Dates: start: 2008, end: 2009
  2. PEGINTRON [Suspect]
     Indication: HEPATIC CIRRHOSIS
  3. RIBAVIRIN [Suspect]
     Indication: HEPATITIS C
     Dosage: UNK
     Route: 048
     Dates: start: 2008, end: 2009
  4. RIBAVIRIN [Suspect]
     Indication: HEPATIC CIRRHOSIS

REACTIONS (7)
  - Liver transplant [Unknown]
  - Liver transplant rejection [Not Recovered/Not Resolved]
  - Hepatic neoplasm [Recovered/Resolved]
  - Tremor [Unknown]
  - Asthenia [Unknown]
  - Weight decreased [Unknown]
  - Off label use [Unknown]
